FAERS Safety Report 7973872-1 (Version None)
Quarter: 2011Q4

REPORT INFORMATION
  Report Type: 
  Country: None (occurrence: None)
  Receive Date: 20111213
  Receipt Date: 20111208
  Transmission Date: 20120403
  Serious: Yes (Hospitalization, Other)
  Sender: FDA-Public Use
  Company Number: US-CEPHALON-2011005135

PATIENT
  Sex: Male
  Weight: 66 kg

DRUGS (17)
  1. LENALIDOMIDE [Suspect]
     Indication: MULTIPLE MYELOMA
     Dates: start: 20110813, end: 20110824
  2. GABAPENTIN [Concomitant]
     Dates: start: 20110426
  3. ALLOPURINOL [Concomitant]
     Dates: start: 20110815
  4. FLUCONAZOLE [Concomitant]
     Dates: start: 20110816
  5. TREANDA [Suspect]
     Indication: MULTIPLE MYELOMA
     Route: 041
     Dates: start: 20110813, end: 20110814
  6. DEXAMETHASONE [Concomitant]
     Indication: MULTIPLE MYELOMA
     Dates: start: 20110813, end: 20110820
  7. COLACE [Concomitant]
     Dates: start: 20110819
  8. PRAVACHOL [Concomitant]
     Dates: start: 20110806
  9. DEXAMETHASONE [Concomitant]
     Dates: start: 20110903
  10. ARANESP [Concomitant]
     Dates: start: 20110912
  11. MAGIC MOUTHWASH [Concomitant]
     Dates: start: 20110826
  12. GRANISETRON [Concomitant]
     Dates: start: 20110912
  13. TREANDA [Suspect]
     Route: 041
     Dates: start: 20110912
  14. LENALIDOMIDE [Suspect]
     Dates: start: 20110912, end: 20110923
  15. OXYCODONE HCL [Concomitant]
     Dates: start: 20110606
  16. VALACYCLOVIR [Concomitant]
     Dates: start: 20110816
  17. ASPIRIN [Concomitant]
     Dates: start: 20110813

REACTIONS (13)
  - HAEMOGLOBIN DECREASED [None]
  - GRANULOMA [None]
  - PYREXIA [None]
  - PLATELET COUNT DECREASED [None]
  - NEUTROPENIA [None]
  - LYMPHADENOPATHY [None]
  - PNEUMONIA [None]
  - LUNG NEOPLASM [None]
  - INFECTION [None]
  - WHITE BLOOD CELL COUNT DECREASED [None]
  - ATELECTASIS [None]
  - ORAL HERPES [None]
  - STAPHYLOCOCCAL INFECTION [None]
